FAERS Safety Report 7177752-3 (Version None)
Quarter: 2010Q4

REPORT INFORMATION
  Report Type: 
  Country: None (occurrence: None)
  Receive Date: 20101220
  Receipt Date: 20101215
  Transmission Date: 20110411
  Serious: Yes (Death)
  Sender: FDA-Public Use
  Company Number: TN-SANOFI-AVENTIS-2010SA076224

PATIENT
  Age: 57 Year
  Sex: Female

DRUGS (4)
  1. PLAVIX [Suspect]
     Indication: MYOCARDIAL INFARCTION
     Route: 048
     Dates: start: 20100617, end: 20101128
  2. KARDEGIC [Concomitant]
     Route: 048
     Dates: end: 20101128
  3. ENALAPRIL [Concomitant]
     Route: 048
     Dates: end: 20101128
  4. TAHOR [Concomitant]
     Indication: DYSLIPIDAEMIA
     Route: 048
     Dates: end: 20101128

REACTIONS (1)
  - MYOCARDIAL INFARCTION [None]
